FAERS Safety Report 11105546 (Version 1)
Quarter: 2015Q2

REPORT INFORMATION
  Report Type: Spontaneous
  Country: US (occurrence: US)
  Receive Date: 20150512
  Receipt Date: 20150512
  Transmission Date: 20150821
  Serious: Yes (Other)
  Sender: FDA-Public Use
  Company Number: US-AMGEN-USASP2015044075

PATIENT
  Age: 10 Month
  Sex: Male
  Weight: 2.61 kg

DRUGS (2)
  1. ENBREL [Suspect]
     Active Substance: ETANERCEPT
     Indication: EXPOSURE DURING PREGNANCY
     Dosage: UNK
     Route: 064
  2. PRENATAL                           /01529801/ [Concomitant]
     Dosage: UNK

REACTIONS (6)
  - Heart rate decreased [Recovered/Resolved]
  - Foetal exposure during pregnancy [Unknown]
  - Exposure during breast feeding [Unknown]
  - Nasopharyngitis [Unknown]
  - Ear infection [Unknown]
  - Cough [Unknown]

NARRATIVE: CASE EVENT DATE: 201503
